FAERS Safety Report 8996629 (Version 1)
Quarter: 2013Q1

REPORT INFORMATION
  Report Type: Spontaneous
  Country: SG (occurrence: SG)
  Receive Date: 20130104
  Receipt Date: 20130104
  Transmission Date: 20140127
  Serious: Yes (Other)
  Sender: FDA-Public Use
  Company Number: SG-PFIZER INC-2013001701

PATIENT
  Sex: 0

DRUGS (2)
  1. PIPERACILLIN/TAZOBACTAM [Suspect]
     Dosage: UNK
  2. GENTAMICIN [Suspect]
     Dosage: UNK

REACTIONS (1)
  - Drug eruption [Unknown]
